FAERS Safety Report 8075900-4 (Version None)
Quarter: 2012Q1

REPORT INFORMATION
  Report Type: 
  Country: None (occurrence: None)
  Receive Date: 20120117
  Receipt Date: 20120105
  Transmission Date: 20120608
  Serious: Yes (Disabling, Other)
  Sender: FDA-Public Use
  Company Number: 2012-0037

PATIENT
  Age: 75 Year
  Sex: Male

DRUGS (7)
  1. ASASTIN RETARD (DIPYRIDAMOLE) [Concomitant]
  2. DOCUSATE (DOCUSATE) [Concomitant]
  3. PERINDOPRIL ERBUMINE [Concomitant]
  4. ACETAMINOPHEN [Concomitant]
  5. DYSPORT [Suspect]
     Indication: MUSCLE SPASTICITY
     Dosage: SINGLE CYCLE
  6. SIMVASTATIN [Concomitant]
  7. ZOLPIDEM [Concomitant]

REACTIONS (1)
  - POLYCYTHAEMIA VERA [None]
